FAERS Safety Report 14077782 (Version 3)
Quarter: 2017Q4

REPORT INFORMATION
  Report Type: Report from Study
  Country: US (occurrence: US)
  Receive Date: 20171012
  Receipt Date: 20171229
  Transmission Date: 20180321
  Serious: No
  Sender: FDA-Public Use
  Company Number: PHEH2017US032648

PATIENT
  Age: 31 Year
  Sex: Female

DRUGS (1)
  1. GILENYA [Suspect]
     Active Substance: FINGOLIMOD HYDROCHLORIDE
     Indication: RELAPSING-REMITTING MULTIPLE SCLEROSIS
     Dosage: 0.5 MG, QD
     Route: 048
     Dates: start: 20170922

REACTIONS (8)
  - Cough [Recovering/Resolving]
  - Ear pain [Recovering/Resolving]
  - Pyrexia [Recovered/Resolved]
  - Limb discomfort [Recovering/Resolving]
  - Muscle spasticity [Recovering/Resolving]
  - Fatigue [Recovered/Resolved]
  - Liver function test increased [Unknown]
  - Oropharyngeal pain [Recovering/Resolving]

NARRATIVE: CASE EVENT DATE: 20170922
